FAERS Safety Report 9250132 (Version 3)
Quarter: 2013Q3

REPORT INFORMATION
  Report Type: Spontaneous
  Country: US (occurrence: US)
  Receive Date: 20130424
  Receipt Date: 20130828
  Transmission Date: 20140515
  Serious: No
  Sender: FDA-Public Use
  Company Number: US-BIOGENIDEC-2013BI035884

PATIENT
  Age: 59 Year
  Sex: Female

DRUGS (3)
  1. TYSABRI [Suspect]
     Indication: MULTIPLE SCLEROSIS
     Route: 042
     Dates: start: 20130417
  2. AVONEX [Concomitant]
     Indication: MULTIPLE SCLEROSIS
     Route: 030
  3. BENADRYL [Concomitant]
     Indication: PREMEDICATION

REACTIONS (4)
  - Hypersomnia [Not Recovered/Not Resolved]
  - Urticaria [Recovered/Resolved]
  - Rash [Unknown]
  - Fatigue [Recovered/Resolved]
